FAERS Safety Report 21330808 (Version 4)
Quarter: 2022Q4

REPORT INFORMATION
  Report Type: Spontaneous
  Country: US (occurrence: US)
  Receive Date: 20220914
  Receipt Date: 20221111
  Transmission Date: 20230112
  Serious: No
  Sender: FDA-Public Use
  Company Number: US-SA-SAC20220912001444

PATIENT
  Age: 77 Year
  Sex: Male
  Weight: 80.69 kg

DRUGS (2)
  1. DUPIXENT [Suspect]
     Active Substance: DUPILUMAB
     Indication: Dermatitis atopic
     Dosage: 600 MG, 1X
     Route: 058
     Dates: start: 2022, end: 2022
  2. DUPIXENT [Suspect]
     Active Substance: DUPILUMAB
     Dosage: 300 MG, QOW
     Route: 058
     Dates: start: 20220902, end: 2022

REACTIONS (15)
  - Swelling [Not Recovered/Not Resolved]
  - Oedema peripheral [Unknown]
  - Dry skin [Recovering/Resolving]
  - Skin disorder [Unknown]
  - Neck pain [Unknown]
  - Skin discolouration [Unknown]
  - Blepharal pigmentation [Not Recovered/Not Resolved]
  - Alopecia [Unknown]
  - Insomnia [Unknown]
  - Pruritus [Unknown]
  - Skin exfoliation [Recovering/Resolving]
  - Erythema [Unknown]
  - Ocular hyperaemia [Not Recovered/Not Resolved]
  - Rash macular [Unknown]
  - Eye pruritus [Not Recovered/Not Resolved]

NARRATIVE: CASE EVENT DATE: 20220101
